FAERS Safety Report 21177252 (Version 1)
Quarter: 2022Q3

REPORT INFORMATION
  Report Type: Spontaneous
  Country: US (occurrence: None)
  Receive Date: 20220804
  Receipt Date: 20220804
  Transmission Date: 20221026
  Serious: Yes (Disabling)
  Sender: FDA-Public Use
  Company Number: None

PATIENT
  Age: 26 Year
  Sex: Female
  Weight: 72 kg

DRUGS (7)
  1. SINGULAIR [Suspect]
     Active Substance: MONTELUKAST SODIUM
     Indication: Multiple allergies
     Dosage: FREQUENCY : AT BEDTIME;?
     Route: 048
     Dates: start: 20220713, end: 20220719
  2. UNSPECIFIED INGREDIENT [Concomitant]
     Active Substance: UNSPECIFIED INGREDIENT
  3. MAGNESIUM [Concomitant]
     Active Substance: MAGNESIUM
  4. VITAMIN B12 [Concomitant]
     Active Substance: CYANOCOBALAMIN
  5. VITAMIN D3 [Concomitant]
     Active Substance: CHOLECALCIFEROL
  6. OMEGA 3 [Concomitant]
     Active Substance: CAPSAICIN
  7. HERBALS [Concomitant]
     Active Substance: HERBALS

REACTIONS (10)
  - Anxiety [None]
  - Depression [None]
  - Hypertension [None]
  - Insomnia [None]
  - Palpitations [None]
  - Headache [None]
  - Dizziness [None]
  - Nausea [None]
  - Decreased appetite [None]
  - Abnormal dreams [None]

NARRATIVE: CASE EVENT DATE: 20220718
